FAERS Safety Report 24094881 (Version 4)
Quarter: 2024Q4

REPORT INFORMATION
  Report Type: Spontaneous
  Country: US (occurrence: US)
  Receive Date: 20240716
  Receipt Date: 20241010
  Transmission Date: 20250114
  Serious: Yes (Other)
  Sender: BRISTOL MYERS SQUIBB
  Company Number: US-BRISTOL-MYERS SQUIBB COMPANY-2024-111833

PATIENT
  Age: 58 Year
  Sex: Male

DRUGS (4)
  1. SPRYCEL [Suspect]
     Active Substance: DASATINIB
     Indication: Chronic myeloid leukaemia
     Route: 048
     Dates: start: 202406
  2. SPRYCEL [Suspect]
     Active Substance: DASATINIB
     Route: 048
     Dates: start: 202406
  3. SPRYCEL [Suspect]
     Active Substance: DASATINIB
     Route: 048
     Dates: start: 202406
  4. SPRYCEL [Suspect]
     Active Substance: DASATINIB
     Route: 048
     Dates: start: 20240911, end: 20240930

REACTIONS (8)
  - Headache [Unknown]
  - Fatigue [Unknown]
  - Malaise [Unknown]
  - Oedema [Unknown]
  - Swelling [Unknown]
  - General physical health deterioration [Unknown]
  - Cardiac failure congestive [Unknown]
  - Hypertension [Unknown]

NARRATIVE: CASE EVENT DATE: 20240911
